FAERS Safety Report 23182497 (Version 2)
Quarter: 2024Q4

REPORT INFORMATION
  Report Type: Report from Study
  Country: US (occurrence: US)
  Receive Date: 20231114
  Receipt Date: 20241223
  Transmission Date: 20250114
  Serious: Yes (Hospitalization, Other)
  Sender: BAUSCH AND LOMB
  Company Number: US-BAUSCH-BL-2023-001332

PATIENT
  Age: 69 Year
  Sex: Male
  Weight: 92.2 kg

DRUGS (19)
  1. XIFAXAN [Suspect]
     Active Substance: RIFAXIMIN
     Indication: Hepatic encephalopathy
     Route: 048
     Dates: start: 20210806
  2. XIFAXAN [Suspect]
     Active Substance: RIFAXIMIN
     Route: 048
     Dates: start: 20240130, end: 20241111
  3. ENULOSE [Suspect]
     Active Substance: LACTULOSE
     Indication: Hepatic encephalopathy
     Dosage: TAKE 30 ML BY MOUTH 3 TIMES A DAY, MAY TITRATE TO ACHIEVE 3-4 SOFT BOWEL MOVEMENTS PER DAY.
     Route: 048
     Dates: start: 20230127
  4. ENULOSE [Suspect]
     Active Substance: LACTULOSE
     Dosage: TAKE 30 ML BY MOUTH 3 TIMES A DAY, MAY TITRATE TO ACHIEVE 3-4 SOFT BOWEL MOVEMENTS PER DAY.
     Route: 048
     Dates: start: 20240621
  5. LASIX [Concomitant]
     Active Substance: FUROSEMIDE
     Indication: Product used for unknown indication
     Route: 048
     Dates: start: 20230417
  6. LASIX [Concomitant]
     Active Substance: FUROSEMIDE
     Route: 048
     Dates: start: 20240105
  7. ALDACTONE [Concomitant]
     Active Substance: SPIRONOLACTONE
     Indication: Product used for unknown indication
     Dosage: TAKE 50 MG BY MOUTH
     Route: 048
     Dates: start: 20211122, end: 20231023
  8. ALDACTONE [Concomitant]
     Active Substance: SPIRONOLACTONE
     Dosage: TAKE 50 MG BY MOUTH
     Route: 048
     Dates: start: 20231023
  9. VITAMIN A [Concomitant]
     Active Substance: VITAMIN A
     Indication: Product used for unknown indication
     Dosage: FORM STRENGTH: 10000 UNITS
     Route: 048
     Dates: start: 20240209, end: 20240806
  10. DIALYVITE VITAMIN D3 MAX [Concomitant]
     Indication: Product used for unknown indication
     Route: 048
     Dates: end: 20230928
  11. .ALPHA.-TOCOPHEROL [Concomitant]
     Active Substance: .ALPHA.-TOCOPHEROL
     Indication: Product used for unknown indication
  12. ZYLOPRIM [Concomitant]
     Active Substance: ALLOPURINOL
     Indication: Product used for unknown indication
     Route: 048
     Dates: start: 20230417
  13. SYNTHROID [Concomitant]
     Active Substance: LEVOTHYROXINE SODIUM
     Indication: Product used for unknown indication
     Dosage: EMPTY STOMACH
     Route: 048
     Dates: start: 20230530
  14. SYNTHROID [Concomitant]
     Active Substance: LEVOTHYROXINE SODIUM
     Dosage: EMPTY STOMACH
     Route: 048
     Dates: start: 20240528
  15. PROTONIX [Concomitant]
     Active Substance: PANTOPRAZOLE SODIUM
     Indication: Product used for unknown indication
     Route: 048
     Dates: end: 20230724
  16. PROTONIX [Concomitant]
     Active Substance: PANTOPRAZOLE SODIUM
     Route: 048
     Dates: start: 20230724, end: 20240731
  17. XODOL [Concomitant]
     Active Substance: ACETAMINOPHEN\HYDROCODONE BITARTRATE
     Indication: Product used for unknown indication
     Dosage: 5/300 MG. MAX DAILY AMOUNT: 1 TABLET
     Route: 048
     Dates: start: 20240605
  18. VITAMIN A PALMITATE [XCELLENT A 3000] [Concomitant]
     Indication: Product used for unknown indication
     Route: 048
     Dates: start: 20230711, end: 20240826
  19. ZYLOPRIM [Concomitant]
     Active Substance: ALLOPURINOL
     Indication: Product used for unknown indication
     Route: 048
     Dates: start: 20230811, end: 20240806

REACTIONS (6)
  - Neuropathy peripheral [Unknown]
  - Facet joint syndrome [Unknown]
  - Hepatic encephalopathy [Recovered/Resolved]
  - Condition aggravated [Recovered/Resolved]
  - Back pain [Unknown]
  - Fatigue [Unknown]
